FAERS Safety Report 11568634 (Version 1)
Quarter: 2015Q3

REPORT INFORMATION
  Report Type: Report from Study
  Country: AU (occurrence: AU)
  Receive Date: 20150929
  Receipt Date: 20150929
  Transmission Date: 20151125
  Serious: Yes (Other)
  Sender: FDA-Public Use
  Company Number: PHHY2009AU072776

PATIENT
  Sex: Male

DRUGS (1)
  1. CLOZARIL [Suspect]
     Active Substance: CLOZAPINE
     Indication: PRODUCT USED FOR UNKNOWN INDICATION
     Dosage: UNK
     Route: 065

REACTIONS (10)
  - Body mass index increased [Unknown]
  - Heart rate increased [Not Recovered/Not Resolved]
  - Feeling hot [Unknown]
  - Type 2 diabetes mellitus [Unknown]
  - Blood cholesterol increased [Not Recovered/Not Resolved]
  - Hyperhidrosis [Unknown]
  - Blood triglycerides increased [Recovering/Resolving]
  - Blood pressure increased [Unknown]
  - Waist circumference increased [Unknown]
  - Body temperature decreased [Recovering/Resolving]

NARRATIVE: CASE EVENT DATE: 20091022
